FAERS Safety Report 10224934 (Version 1)
Quarter: 2014Q2

REPORT INFORMATION
  Report Type: Spontaneous
  Country: JP (occurrence: JP)
  Receive Date: 20140609
  Receipt Date: 20140609
  Transmission Date: 20141212
  Serious: Yes (Hospitalization)
  Sender: FDA-Public Use
  Company Number: JP-BRISTOL-MYERS SQUIBB COMPANY-20962650

PATIENT
  Age: 71 Year
  Sex: Male

DRUGS (3)
  1. ORENCIA FOR INJ 250 MG/VIAL [Suspect]
     Indication: RHEUMATOID ARTHRITIS
     Route: 042
     Dates: start: 20140328
  2. PREDNISOLONE [Suspect]
     Route: 048
  3. PROGRAF [Suspect]
     Route: 048

REACTIONS (1)
  - Large intestine perforation [Recovering/Resolving]
